FAERS Safety Report 7714050 (Version 3)
Quarter: 2012Q4

REPORT INFORMATION
  Report Type: 
  Country: FR (occurrence: FR)
  Receive Date: 20101216
  Receipt Date: 20120829
  Transmission Date: 20130627
  Serious: Yes (Death)
  Sender: FDA-Public Use
  Company Number: FR-ACTELION-A-CH2010-39499

PATIENT
  Sex: Female

DRUGS (1)
  1. ZAVESCA [Suspect]
     Indication: NIEMANN-PICK DISEASE
     Dosage: 50 mg, qd
     Route: 048

REACTIONS (5)
  - Multi-organ failure [Fatal]
  - Respiratory failure [Fatal]
  - Hepatic failure [Fatal]
  - Liver disorder [Unknown]
  - Weight decreased [Not Recovered/Not Resolved]
